FAERS Safety Report 9374389 (Version 1)
Quarter: 2013Q2

REPORT INFORMATION
  Report Type: Report from Study
  Country: AU (occurrence: AU)
  Receive Date: 20130628
  Receipt Date: 20130628
  Transmission Date: 20140414
  Serious: Yes (Hospitalization)
  Sender: FDA-Public Use
  Company Number: PHHY2013AU029983

PATIENT
  Age: 64 Year
  Sex: Female

DRUGS (3)
  1. ACLASTA [Suspect]
     Dosage: 5 MG
     Route: 042
     Dates: start: 20130322
  2. EVISTA [Concomitant]
     Dosage: UNK
  3. SOMINEX                                 /CAN/ [Concomitant]
     Dosage: UNK UKN, UNK

REACTIONS (8)
  - Retching [Recovered/Resolved]
  - Influenza like illness [Recovered/Resolved]
  - Feeling of body temperature change [Recovered/Resolved]
  - Tremor [Recovered/Resolved]
  - Asthenia [Recovered/Resolved]
  - Vomiting [Recovered/Resolved]
  - Dizziness [Recovered/Resolved]
  - Heart rate increased [Recovering/Resolving]
